FAERS Safety Report 9584516 (Version 1)
Quarter: 2013Q4

REPORT INFORMATION
  Report Type: Spontaneous
  Country: US (occurrence: US)
  Receive Date: 20131002
  Receipt Date: 20131002
  Transmission Date: 20140711
  Serious: No
  Sender: FDA-Public Use
  Company Number: US-AMGEN-USASP2013054119

PATIENT
  Age: 48 Year
  Sex: Male

DRUGS (1)
  1. ENBREL [Suspect]
     Indication: PSORIASIS
     Dosage: 50 MG/ML, QWK
     Route: 065
     Dates: start: 2008

REACTIONS (4)
  - Arthritis [Unknown]
  - Joint stiffness [Unknown]
  - Muscle spasticity [Unknown]
  - Onychomycosis [Unknown]
